FAERS Safety Report 4408365-1 (Version None)
Quarter: 2004Q3

REPORT INFORMATION
  Report Type: 
  Country: None (occurrence: None)
  Receive Date: 20040726
  Receipt Date: 20040726
  Transmission Date: 20050211
  Serious: Yes (Life-Threatening)
  Sender: FDA-Public Use
  Company Number: None

PATIENT
  Age: 15 Month
  Sex: Male
  Weight: 12 kg

DRUGS (1)
  1. FLUCONAZOLE [Suspect]
     Dates: end: 20040723

REACTIONS (2)
  - LETHARGY [None]
  - SUPRAVENTRICULAR TACHYCARDIA [None]
